FAERS Safety Report 17348284 (Version 2)
Quarter: 2020Q1

REPORT INFORMATION
  Report Type: Spontaneous
  Country: US (occurrence: US)
  Receive Date: 20200130
  Receipt Date: 20200218
  Transmission Date: 20200409
  Serious: No
  Sender: FDA-Public Use
  Company Number: US-PFIZER INC-2020039918

PATIENT
  Age: 63 Year
  Sex: Female

DRUGS (1)
  1. IBRANCE [Suspect]
     Active Substance: PALBOCICLIB
     Dosage: 75 MG, CYCLIC, (1C PO (ORAL) QD (ONCE A DAY) FOR 21 DAYS AND OFF 7 DAYS)
     Route: 048

REACTIONS (5)
  - Amnesia [Unknown]
  - Alopecia [Unknown]
  - Vomiting [Unknown]
  - Abdominal pain upper [Unknown]
  - Product dose omission [Unknown]
